FAERS Safety Report 15896170 (Version 3)
Quarter: 2019Q3

REPORT INFORMATION
  Report Type: Report from Study
  Country: CA (occurrence: CA)
  Receive Date: 20190131
  Receipt Date: 20190920
  Transmission Date: 20191004
  Serious: Yes (Death)
  Sender: FDA-Public Use
  Company Number: CA-HLSUS-2019-CA-000103

PATIENT
  Age: 58 Year
  Sex: Female

DRUGS (1)
  1. CLOZARIL [Suspect]
     Active Substance: CLOZAPINE
     Indication: SCHIZOPHRENIA
     Dosage: 25 IN MORNING, 100 MG AT 6 PM AND 400 MG AT BEDTIME
     Route: 048
     Dates: start: 20030923, end: 201812

REACTIONS (7)
  - Acute respiratory failure [Fatal]
  - Nausea [Fatal]
  - Gastrointestinal haemorrhage [Fatal]
  - Abdominal distension [Fatal]
  - Vomiting [Fatal]
  - Hypotension [Fatal]
  - Electrocardiogram QT prolonged [Fatal]

NARRATIVE: CASE EVENT DATE: 20181121
